FAERS Safety Report 6825830-8 (Version None)
Quarter: 2010Q3

REPORT INFORMATION
  Report Type: 
  Country: None (occurrence: None)
  Receive Date: 20100709
  Receipt Date: 20100628
  Transmission Date: 20110219
  Serious: Yes (Hospitalization)
  Sender: FDA-Public Use
  Company Number: FR-RANBAXY-2010RR-35310

PATIENT
  Age: 32 Year
  Sex: Male

DRUGS (3)
  1. AMOXICILLINE RANBAXY 1 G COMPRIME DISPERSIBLE [Suspect]
     Dosage: 1 DF, SINGLE
     Route: 048
     Dates: start: 20100201, end: 20100201
  2. FLANID [Suspect]
     Dosage: 1 DF, SINGLE
     Route: 048
     Dates: start: 20100201, end: 20100201
  3. AMOXICILLIN [Concomitant]
     Dosage: 2 G, UNK

REACTIONS (7)
  - ANAPHYLACTIC SHOCK [None]
  - BLOOD PRESSURE DECREASED [None]
  - GENERALISED ERYTHEMA [None]
  - LOSS OF CONSCIOUSNESS [None]
  - MALAISE [None]
  - PRURITUS GENERALISED [None]
  - TACHYCARDIA [None]
